FAERS Safety Report 6202549-8 (Version None)
Quarter: 2009Q2

REPORT INFORMATION
  Report Type: 
  Country: None (occurrence: None)
  Receive Date: 20090521
  Receipt Date: 20090521
  Transmission Date: 20091009
  Serious: Yes (Hospitalization, Other)
  Sender: FDA-Public Use
  Company Number: None

PATIENT
  Age: 61 Year
  Sex: Female

DRUGS (2)
  1. DOBUTAMINE HCL [Suspect]
     Indication: STRESS ECHOCARDIOGRAM
     Dosage: 10 MCG/KG/MIN (DOSE INCREMENTS AT 3 MIN INTERVALS )
     Route: 042
  2. ATROPINE [Concomitant]

REACTIONS (3)
  - ELECTROCARDIOGRAM REPOLARISATION ABNORMALITY [None]
  - HYPERTENSION [None]
  - STRESS CARDIOMYOPATHY [None]
